FAERS Safety Report 7350681-8 (Version None)
Quarter: 2011Q1

REPORT INFORMATION
  Report Type: 
  Country: None (occurrence: None)
  Receive Date: 20110304
  Receipt Date: 20110223
  Transmission Date: 20110831
  Serious: Yes (Other)
  Sender: FDA-Public Use
  Company Number: TPA2011A00804

PATIENT
  Sex: 0

DRUGS (2)
  1. PREVACID 24 HR [Concomitant]
  2. PREVACID [Suspect]

REACTIONS (1)
  - PERITONITIS [None]
